FAERS Safety Report 7260858-8 (Version None)
Quarter: 2011Q1

REPORT INFORMATION
  Report Type: 
  Country: None (occurrence: None)
  Receive Date: 20110130
  Receipt Date: 20101123
  Transmission Date: 20110831
  Serious: No
  Sender: FDA-Public Use
  Company Number: US-ABBOTT-10P-163-0687323-00

PATIENT
  Age: 60 Year
  Sex: Female

DRUGS (4)
  1. 2 UNKNOWN MEDICATIONS [Concomitant]
     Indication: HYPERTENSION
  2. HUMIRA [Suspect]
     Indication: RHEUMATOID ARTHRITIS
     Dates: start: 20100901
  3. UNKNOWN MEDICATIONS [Concomitant]
     Indication: ASTHMA
  4. METHOTREXATE [Concomitant]
     Indication: PRODUCT USED FOR UNKNOWN INDICATION
     Dosage: 5-2.5MG TABS WEEKLY
     Route: 048

REACTIONS (2)
  - PYREXIA [None]
  - RESPIRATORY TRACT CONGESTION [None]
